FAERS Safety Report 8829419 (Version 3)
Quarter: 2013Q3

REPORT INFORMATION
  Report Type: Report from Study
  Country: JP (occurrence: JP)
  Receive Date: 20121008
  Receipt Date: 20130911
  Transmission Date: 20140515
  Serious: Yes (Hospitalization)
  Sender: FDA-Public Use
  Company Number: JP-VERTEX PHARMACEUTICAL INC.-2012-022323

PATIENT
  Age: 64 Year
  Sex: Male

DRUGS (10)
  1. VX-950 (TELAPREVIR) [Suspect]
     Indication: CHRONIC HEPATITIS C
     Dosage: 1500 MG, QD
     Route: 048
     Dates: start: 20120409, end: 20120701
  2. REBETOL [Suspect]
     Indication: CHRONIC HEPATITIS C
     Dosage: 400 MG, QD
     Route: 048
     Dates: start: 20120409, end: 20120430
  3. REBETOL [Suspect]
     Dosage: 200 MG, QD
     Route: 048
     Dates: start: 20120501, end: 20120716
  4. REBETOL [Suspect]
     Dosage: 300 MG, QD
     Route: 048
     Dates: start: 20120717, end: 20120722
  5. REBETOL [Suspect]
     Dosage: 400 MG, QD
     Route: 048
     Dates: start: 20120723, end: 20120728
  6. PEGINTERFERON ALFA-2B [Concomitant]
     Dosage: 1.5 ?G/KG, UNK
     Route: 058
     Dates: start: 20120409, end: 20120809
  7. URSO [Concomitant]
     Dosage: 900 MG, UNK
     Route: 048
  8. CAMOSTON [Concomitant]
     Dosage: 600 MG, UNK
     Route: 048
  9. ANOPROLIN [Concomitant]
     Dosage: 100 MG, UNK
     Route: 048
     Dates: start: 20120409, end: 20120821
  10. TALION [Concomitant]
     Dosage: 20 MG, QD
     Route: 048
     Dates: start: 20120409, end: 20120923

REACTIONS (1)
  - Pancreatitis acute [Recovered/Resolved]
